FAERS Safety Report 4723668-9 (Version None)
Quarter: 2005Q3

REPORT INFORMATION
  Report Type: 
  Country: None (occurrence: None)
  Receive Date: 20050725
  Receipt Date: 20050705
  Transmission Date: 20060218
  Serious: Yes (Hospitalization, Other)
  Sender: FDA-Public Use
  Company Number: 200515608US

PATIENT
  Sex: Female

DRUGS (4)
  1. ARAVA [Suspect]
     Route: 048
     Dates: start: 20040801, end: 20050701
  2. METHOTREXATE [Concomitant]
     Indication: RHEUMATOID ARTHRITIS
     Dosage: DOSE: NOT REPORTED
     Dates: end: 20050401
  3. ADVIL [Concomitant]
     Dosage: DOSE: NOT PROVIDED
  4. TYLENOL [Concomitant]
     Dosage: DOSE: NOT PROVIDED

REACTIONS (10)
  - ALANINE AMINOTRANSFERASE INCREASED [None]
  - ANAEMIA [None]
  - ASCITES [None]
  - ASPARTATE AMINOTRANSFERASE INCREASED [None]
  - BLOOD GLUCOSE INCREASED [None]
  - GENERALISED OEDEMA [None]
  - HEPATIC NECROSIS [None]
  - HEPATIC STEATOSIS [None]
  - HEPATOTOXICITY [None]
  - PLEURAL EFFUSION [None]
